FAERS Safety Report 26178143 (Version 1)
Quarter: 2025Q4

REPORT INFORMATION
  Report Type: Spontaneous
  Country: CA (occurrence: CA)
  Receive Date: 20251219
  Receipt Date: 20251219
  Transmission Date: 20260117
  Serious: Yes (Disabling, Other)
  Sender: APOTEX
  Company Number: CA-PGRTD-001155594

PATIENT
  Age: 35 Year
  Sex: Female
  Weight: 55 kg

DRUGS (1)
  1. CYCLOBENZAPRINE [Suspect]
     Active Substance: CYCLOBENZAPRINE
     Indication: Muscle spasms
     Dosage: 1 EVERY 1 DAYS
     Route: 061

REACTIONS (5)
  - Fall [Recovering/Resolving]
  - Concussion [Recovering/Resolving]
  - Craniocerebral injury [Recovering/Resolving]
  - Skin laceration [Recovering/Resolving]
  - Somnolence [Recovering/Resolving]
